FAERS Safety Report 9772937 (Version 1)
Quarter: 2013Q4

REPORT INFORMATION
  Report Type: Spontaneous
  Country: BR (occurrence: BR)
  Receive Date: 20131219
  Receipt Date: 20131219
  Transmission Date: 20140711
  Serious: Yes (Hospitalization)
  Sender: FDA-Public Use
  Company Number: BR-ROXANE LABORATORIES, INC.-2013-RO-01960RO

PATIENT
  Age: 33 Year
  Sex: Male

DRUGS (12)
  1. PREDNISONE [Suspect]
     Indication: PEMPHIGUS
  2. PREDNISONE [Suspect]
  3. PREDNISONE [Suspect]
  4. AZATHIOPRINE [Suspect]
     Indication: PEMPHIGUS
     Dosage: 150 MG
  5. MYCOPHENOLATE MOFETIL [Suspect]
     Indication: PEMPHIGUS
     Dosage: 3 G
  6. CYCLOPHOSPHAMIDE TABLETS USP [Suspect]
     Indication: PEMPHIGUS
     Dosage: 250 MG
  7. DEXAMETHASONE [Suspect]
     Indication: PEMPHIGUS
     Dosage: 100 MG
  8. SULFONE [Concomitant]
     Indication: PEMPHIGUS
     Dosage: 100 MG
  9. SULFONE [Concomitant]
  10. SYSTEMIC ANTIBIOTICS [Concomitant]
     Indication: INFECTION PROPHYLAXIS
  11. METHYLPREDNISOLONE [Concomitant]
     Indication: PEMPHIGUS
     Dosage: 1 G
  12. METHYLPREDNISOLONE [Concomitant]

REACTIONS (5)
  - Pemphigus [Recovered/Resolved]
  - Odynophagia [Unknown]
  - Thrombocytopenia [Unknown]
  - Kaposi^s varicelliform eruption [Unknown]
  - No therapeutic response [Unknown]
